FAERS Safety Report 12810374 (Version 1)
Quarter: 2016Q4

REPORT INFORMATION
  Report Type: Spontaneous
  Country: US (occurrence: US)
  Receive Date: 20161004
  Receipt Date: 20161004
  Transmission Date: 20170207
  Serious: Yes (Life-Threatening)
  Sender: FDA-Public Use
  Company Number: None

PATIENT
  Age: 68 Year
  Sex: Female
  Weight: 130.05 kg

DRUGS (2)
  1. HEPARIN [Suspect]
     Active Substance: HEPARIN SODIUM
     Indication: ACUTE MYOCARDIAL INFARCTION
     Dosage: OTHER FREQUENCY:CONTINUOUS??100 UNITS/ML
     Route: 042
     Dates: start: 20161001, end: 20161002
  2. TIROFIBAN [Suspect]
     Active Substance: TIROFIBAN
     Indication: ACUTE MYOCARDIAL INFARCTION
     Dosage: ?          OTHER FREQUENCY:CONTINUOUS;?
     Route: 042
     Dates: start: 20161001, end: 20161002

REACTIONS (4)
  - Petechiae [None]
  - Cardiogenic shock [None]
  - Platelet count decreased [None]
  - Chest pain [None]

NARRATIVE: CASE EVENT DATE: 20161001
